FAERS Safety Report 5432089-5 (Version None)
Quarter: 2007Q3

REPORT INFORMATION
  Report Type: 
  Country: None (occurrence: None)
  Receive Date: 20070830
  Receipt Date: 20070813
  Transmission Date: 20080115
  Serious: No
  Sender: FDA-Public Use
  Company Number: US-BOEHRINGER INGELHEIM PHARMACEUTICALS, INC.-2007-BP-05595BP

PATIENT
  Sex: Female

DRUGS (6)
  1. SPIRIVA [Suspect]
     Indication: CHRONIC OBSTRUCTIVE PULMONARY DISEASE
     Route: 055
     Dates: start: 20060101
  2. VYTORIN [Concomitant]
  3. PREMARIN [Concomitant]
  4. AMITRIP [Concomitant]
  5. MICARDIS HCT [Concomitant]
  6. NAMENDA [Concomitant]

REACTIONS (2)
  - DRY MOUTH [None]
  - OVERDOSE [None]
